FAERS Safety Report 15975879 (Version 1)
Quarter: 2019Q1

REPORT INFORMATION
  Report Type: Spontaneous
  Country: GB (occurrence: GB)
  Receive Date: 20190218
  Receipt Date: 20190218
  Transmission Date: 20190418
  Serious: Yes (Death, Life-Threatening, Other)
  Sender: FDA-Public Use
  Company Number: GB-ASTRAZENECA-2019SE25651

PATIENT
  Age: 77 Year
  Sex: Male
  Weight: 104 kg

DRUGS (20)
  1. PARACETAMOL [Concomitant]
     Active Substance: ACETAMINOPHEN
     Dosage: 2 DF TO BE TAKEN FOUR TIMES DAILY WHEN REQUIRED
     Dates: start: 20180817
  2. HYOSCINE BUTYLBROMIDE [Concomitant]
     Active Substance: BUTYLSCOPOLAMINE
     Dosage: USE AS DIRECTED AS PER PALLIATIVE CARE DRUG CHART
     Dates: start: 20190122
  3. HUMULIN L [Concomitant]
     Active Substance: INSULIN HUMAN
     Dates: start: 20180817
  4. METOCLOPRAMIDE. [Concomitant]
     Active Substance: METOCLOPRAMIDE
     Indication: NAUSEA
     Dosage: USE AS DIRECTED
     Dates: start: 20181115, end: 20181213
  5. LEVOMEPROMAZINE [Concomitant]
     Active Substance: LEVOMEPROMAZINE
     Indication: NAUSEA
     Dosage: IN PALLIATIVE CARE
     Dates: start: 20190124
  6. HALOPERIDOL. [Concomitant]
     Active Substance: HALOPERIDOL
     Indication: HALLUCINATION
     Dosage: IN PALLIATIVE CARE
     Dates: start: 20190122
  7. CYCLIZINE [Concomitant]
     Active Substance: CYCLIZINE
     Dosage: USE AS DIRECTED AS PER PALLIATIVE CARE DRUG CHART
     Dates: start: 20181019
  8. OMEPRAZOLE. [Suspect]
     Active Substance: OMEPRAZOLE
     Dosage: 20.0MG UNKNOWN
     Route: 048
     Dates: start: 20180403
  9. MIDAZOLAM [Concomitant]
     Active Substance: MIDAZOLAM HYDROCHLORIDE
     Indication: RESTLESSNESS
     Dosage: IN PALLIATIVE CARE
     Dates: start: 20181115, end: 20181213
  10. LOPERAMIDE [Concomitant]
     Active Substance: LOPERAMIDE
     Indication: DIARRHOEA
     Dosage: TAKE ONE DF FOUR TIMES A DAY AS REQUIRED
     Dates: start: 20190117, end: 20190124
  11. FINASTERIDE. [Concomitant]
     Active Substance: FINASTERIDE
     Indication: PROSTATOMEGALY
     Dates: start: 20180817
  12. PIVMECILLINAM [Concomitant]
     Active Substance: AMDINOCILLIN PIVOXIL
     Dates: start: 20181220, end: 20181223
  13. OXYCODONE HYDROCHLORIDE. [Concomitant]
     Active Substance: OXYCODONE HYDROCHLORIDE
     Dosage: 5MG (HALF OF ONE MILLILITER) EVERY 4 HOURS AS REQUIRED
     Dates: start: 20181221, end: 20181222
  14. MEZOLAR MATRIX [Concomitant]
     Active Substance: FENTANYL
     Indication: PAIN
     Dosage: 1.0DF UNKNOWN
     Dates: start: 20181115
  15. INSTILLAGEL [Concomitant]
     Active Substance: CHLORHEXIDINE GLUCONATE\LIDOCAINE HYDROCHLORIDE
     Dosage: USE AS DIRECTED
     Dates: start: 20190107, end: 20190108
  16. THIAMINE. [Concomitant]
     Active Substance: THIAMINE
     Dates: start: 20180817
  17. WATER FOR INJECTION [Concomitant]
     Active Substance: WATER
     Dosage: USE AS DIRECTED: AMEND QUANTITY TO REQUIRED
     Dates: start: 20181115, end: 20181213
  18. HUMULIN M3 [Concomitant]
     Active Substance: INSULIN HUMAN
     Indication: DIABETES MELLITUS
     Dosage: USE AS DIRECTED
     Dates: start: 20180817
  19. RANITIDINE. [Concomitant]
     Active Substance: RANITIDINE
     Dosage: USE AS DIRECTED FOR SYRINGE DRIVER
     Dates: start: 20180817
  20. ATORVASTATIN [Concomitant]
     Active Substance: ATORVASTATIN
     Indication: HYPERCHOLESTEROLAEMIA
     Dates: start: 20180817

REACTIONS (2)
  - Tubulointerstitial nephritis [Fatal]
  - Acute kidney injury [Fatal]
